FAERS Safety Report 4847989-4 (Version None)
Quarter: 2005Q4

REPORT INFORMATION
  Report Type: 
  Country: None (occurrence: None)
  Receive Date: 20051206
  Receipt Date: 20051128
  Transmission Date: 20060501
  Serious: Yes (Other)
  Sender: FDA-Public Use
  Company Number: US-2004-036774

PATIENT
  Age: 48 Year
  Sex: Female
  Weight: 67.1 kg

DRUGS (9)
  1. CLIMARA [Suspect]
     Indication: HORMONE REPLACEMENT THERAPY
     Dosage: 0.1 MG/D, CONT, TRANSDERMAL
     Route: 062
     Dates: start: 20000101, end: 20021001
  2. ESTRADIOL [Suspect]
     Indication: HORMONE REPLACEMENT THERAPY
     Dosage: 0.1 MG/D TRANSDERMAL
     Route: 062
     Dates: start: 20000101, end: 20010101
  3. BUTALBITAL [Concomitant]
  4. ACIPHEX [Concomitant]
  5. VIVELLE [Suspect]
     Indication: HORMONE REPLACEMENT THERAPY
     Dosage: 0.05 MG, TRANSDERMAL
     Route: 062
     Dates: start: 20000101, end: 20000101
  6. ESTRADERM [Suspect]
     Indication: HORMONE REPLACEMENT THERAPY
     Dosage: 0.05 MG, TRANSDERMAL
     Route: 062
     Dates: start: 19900101, end: 19990101
  7. PROVERA [Suspect]
     Indication: HORMONE REPLACEMENT THERAPY
     Dosage: 10 MG, ORAL
     Route: 048
     Dates: start: 19890101, end: 19990101
  8. PREMARIN [Suspect]
     Indication: HORMONE REPLACEMENT THERAPY
     Dosage: 1.25 MG, ORAL
     Route: 048
     Dates: start: 19890101, end: 19900101
  9. ESCLIM [Suspect]

REACTIONS (9)
  - BREAST CANCER FEMALE [None]
  - CHEST PAIN [None]
  - DRUG INEFFECTIVE [None]
  - HOT FLUSH [None]
  - IMPAIRED HEALING [None]
  - MIGRAINE [None]
  - OESTROGEN RECEPTOR ASSAY POSITIVE [None]
  - PAIN [None]
  - STOMACH DISCOMFORT [None]
